FAERS Safety Report 5992024-8 (Version None)
Quarter: 2008Q4

REPORT INFORMATION
  Report Type: 
  Country: None (occurrence: None)
  Receive Date: 20081202
  Receipt Date: 20080605
  Transmission Date: 20090506
  Serious: Yes (Hospitalization, Disabling, Other)
  Sender: FDA-Public Use
  Company Number: WAES 0806USA00989

PATIENT
  Age: 59 Year
  Sex: Female

DRUGS (11)
  1. FOSAMAX [Suspect]
     Indication: OSTEOPOROSIS
     Dosage: 70 MG/WKY/PO
     Route: 048
  2. ZOMETA [Suspect]
     Indication: BREAST CANCER
     Dosage: 4 MG/MTH/IV
     Route: 042
  3. LASIX [Concomitant]
  4. LIPITOR [Concomitant]
  5. MEGACE [Concomitant]
  6. SYNTHROID [Concomitant]
  7. FENTANYL-100 [Concomitant]
  8. LACTULOSE [Concomitant]
  9. OXYCODONE [Concomitant]
  10. POTASSIUM CHLORIDE [Concomitant]
  11. SIMVASTATIN [Concomitant]

REACTIONS (1)
  - OSTEONECROSIS [None]
